FAERS Safety Report 15740450 (Version 1)
Quarter: 2018Q4

REPORT INFORMATION
  Report Type: Spontaneous
  Country: CN (occurrence: CN)
  Receive Date: 20181219
  Receipt Date: 20181219
  Transmission Date: 20190205
  Serious: Yes (Hospitalization)
  Sender: FDA-Public Use
  Company Number: CN-ELI_LILLY_AND_COMPANY-CN201812006792

PATIENT
  Sex: Female

DRUGS (4)
  1. HUMALOG MIX50/50 [Suspect]
     Active Substance: INSULIN LISPRO
     Dosage: 14 U, EACH MORNING
     Route: 058
     Dates: end: 2018
  2. HUMALOG MIX50/50 [Suspect]
     Active Substance: INSULIN LISPRO
     Dosage: 12 U, DAILY (AT NIGHT)
     Route: 058
     Dates: end: 2018
  3. HUMALOG MIX50/50 [Suspect]
     Active Substance: INSULIN LISPRO
     Indication: DIABETES MELLITUS
     Dosage: 14 U, EACH MORNING
     Route: 058
     Dates: start: 2009
  4. HUMALOG MIX50/50 [Suspect]
     Active Substance: INSULIN LISPRO
     Dosage: 12 U, DAILY (AT NIGHT)
     Route: 058
     Dates: start: 2009

REACTIONS (2)
  - Blood glucose abnormal [Unknown]
  - Cerebrovascular disorder [Unknown]
